FAERS Safety Report 14413259 (Version 2)
Quarter: 2018Q1

REPORT INFORMATION
  Report Type: Spontaneous
  Country: JP (occurrence: JP)
  Receive Date: 20180119
  Receipt Date: 20180207
  Transmission Date: 20180509
  Serious: Yes (Other)
  Sender: FDA-Public Use
  Company Number: JP-VIIV HEALTHCARE LIMITED-JP2018JPN006256

PATIENT
  Age: 5 Decade
  Sex: Male

DRUGS (14)
  1. PHENYTOIN. [Interacting]
     Active Substance: PHENYTOIN
     Indication: SEIZURE
     Dosage: 600 MG, QD
     Route: 042
     Dates: start: 20160111, end: 20160111
  2. PREZISTA [Concomitant]
     Active Substance: DARUNAVIR ETHANOLATE
     Indication: HIV INFECTION
     Dosage: 800 MG, QD
     Dates: start: 20151218, end: 20160110
  3. RITONAVIR. [Concomitant]
     Active Substance: RITONAVIR
     Dosage: 100 MG, BID
     Dates: start: 20160713, end: 20160915
  4. TIVICAY [Interacting]
     Active Substance: DOLUTEGRAVIR SODIUM
     Dosage: 50 MG, BID
     Route: 048
     Dates: start: 20160329, end: 20160712
  5. PHENYTOIN. [Interacting]
     Active Substance: PHENYTOIN
     Dosage: 300 MG, QD
     Route: 042
     Dates: start: 20160326, end: 20160403
  6. PREZISTA [Concomitant]
     Active Substance: DARUNAVIR ETHANOLATE
     Dosage: 600 MG, BID
     Dates: start: 20160713, end: 20160915
  7. RITONAVIR. [Concomitant]
     Active Substance: RITONAVIR
     Indication: HIV INFECTION
     Dosage: 100 MG, QD
     Dates: start: 20151218, end: 20160110
  8. KALETRA [Concomitant]
     Active Substance: LOPINAVIR\RITONAVIR
     Indication: HIV INFECTION
     Dosage: 5 ML, BID
     Dates: start: 20160916
  9. PHENYTOIN. [Interacting]
     Active Substance: PHENYTOIN
     Dosage: 300 MG, QD
     Route: 042
     Dates: start: 20160112, end: 20160120
  10. EPZICOM [Concomitant]
     Active Substance: ABACAVIR SULFATE\LAMIVUDINE
     Indication: HIV INFECTION
     Dosage: 1 DF, QD
     Dates: start: 20150915
  11. TIVICAY [Suspect]
     Active Substance: DOLUTEGRAVIR SODIUM
     Indication: ACQUIRED IMMUNODEFICIENCY SYNDROME
     Dosage: 50 MG, QD
     Route: 048
     Dates: start: 20150915, end: 20151217
  12. PHENYTOIN. [Interacting]
     Active Substance: PHENYTOIN
     Dosage: 850 MG, QD
     Route: 042
     Dates: start: 20160325, end: 20160325
  13. TIVICAY [Interacting]
     Active Substance: DOLUTEGRAVIR SODIUM
     Indication: HIV INFECTION
     Dosage: 50 MG, QD
     Route: 048
     Dates: start: 20160115, end: 20160325
  14. CELSENTRI [Concomitant]
     Active Substance: MARAVIROC
     Indication: HIV INFECTION
     Dosage: 150 MG, BID
     Dates: start: 20160713

REACTIONS (3)
  - Drug interaction [Unknown]
  - Drug level decreased [Recovered/Resolved]
  - Seizure [Recovered/Resolved]

NARRATIVE: CASE EVENT DATE: 20160111
